FAERS Safety Report 5670341-9 (Version None)
Quarter: 2008Q1

REPORT INFORMATION
  Report Type: 
  Country: None (occurrence: None)
  Receive Date: 20080314
  Receipt Date: 20080314
  Transmission Date: 20080703
  Serious: Yes (Life-Threatening)
  Sender: FDA-Public Use
  Company Number: None

PATIENT

DRUGS (1)
  1. SODIUM IODIDE I 131 [Suspect]

REACTIONS (3)
  - BREAST CANCER [None]
  - GASTRIC CANCER [None]
  - RENAL CELL CARCINOMA [None]
